FAERS Safety Report 25849305 (Version 1)
Quarter: 2025Q3

REPORT INFORMATION
  Report Type: Report from Study
  Country: CA (occurrence: CA)
  Receive Date: 20250925
  Receipt Date: 20250925
  Transmission Date: 20251021
  Serious: Yes (Other)
  Sender: BRISTOL-MYERS SQUIBB COMPANY
  Company Number: CA-BRISTOL-MYERS SQUIBB COMPANY-2025-131533

PATIENT
  Age: 72 Year
  Sex: Female

DRUGS (1)
  1. POMALIDOMIDE [Suspect]
     Active Substance: POMALIDOMIDE
     Indication: Amyloidosis
     Dosage: 21C/28D
     Dates: start: 20171102, end: 202501

REACTIONS (2)
  - Off label use [Unknown]
  - Pneumonia fungal [Recovered/Resolved]

NARRATIVE: CASE EVENT DATE: 20250101
